FAERS Safety Report 24399392 (Version 1)
Quarter: 2024Q4

REPORT INFORMATION
  Report Type: Report from Study
  Country: US (occurrence: US)
  Receive Date: 20241004
  Receipt Date: 20241004
  Transmission Date: 20250114
  Serious: Yes (Other)
  Sender: ABBVIE
  Company Number: US-ABBVIE-5755085

PATIENT
  Sex: Female

DRUGS (1)
  1. SKYRIZI [Suspect]
     Active Substance: RISANKIZUMAB-RZAA
     Indication: Product used for unknown indication
     Route: 058
     Dates: start: 20240506

REACTIONS (20)
  - Cerebrovascular accident [Recovering/Resolving]
  - Vomiting [Unknown]
  - Nausea [Recovered/Resolved]
  - Dry mouth [Unknown]
  - Diarrhoea [Unknown]
  - Porphyria [Unknown]
  - Candida infection [Recovered/Resolved]
  - Nasopharyngitis [Unknown]
  - Brain fog [Recovered/Resolved]
  - Fatigue [Recovered/Resolved]
  - Brain fog [Unknown]
  - Candida infection [Unknown]
  - Nausea [Unknown]
  - Fatigue [Recovered/Resolved]
  - Tremor [Unknown]
  - Fistula [Unknown]
  - Immunodeficiency [Unknown]
  - Urinary tract infection [Recovering/Resolving]
  - Impaired driving ability [Unknown]
  - Unevaluable event [Unknown]

NARRATIVE: CASE EVENT DATE: 20240101
